FAERS Safety Report 15318192 (Version 1)
Quarter: 2018Q3

REPORT INFORMATION
  Report Type: Spontaneous
  Country: US (occurrence: US)
  Receive Date: 20180825
  Receipt Date: 20180825
  Transmission Date: 20181010
  Serious: Yes (Other)
  Sender: FDA-Public Use
  Company Number: US-TEVA-2018-US-946539

PATIENT

DRUGS (1)
  1. LEUCOVORIN. [Suspect]
     Active Substance: LEUCOVORIN
     Indication: GESTATIONAL TROPHOBLASTIC TUMOUR
     Dosage: 60 MILLIGRAM DAILY;
     Route: 048

REACTIONS (1)
  - Gestational trophoblastic tumour [Not Recovered/Not Resolved]

NARRATIVE: CASE EVENT DATE: 201807
